FAERS Safety Report 15972556 (Version 1)
Quarter: 2019Q1

REPORT INFORMATION
  Report Type: Spontaneous
  Country: DE (occurrence: DE)
  Receive Date: 20190216
  Receipt Date: 20190216
  Transmission Date: 20190418
  Serious: Yes (Death, Hospitalization, Other)
  Sender: FDA-Public Use
  Company Number: DE-ACCORD-107478

PATIENT
  Age: 76 Year
  Sex: Male
  Weight: 88 kg

DRUGS (54)
  1. IRINOTECAN [Suspect]
     Active Substance: IRINOTECAN
     Indication: PRODUCT USED FOR UNKNOWN INDICATION
     Dosage: 75 MG MILLGRAM(S) EVERY WEEKS
     Route: 042
     Dates: start: 20140120, end: 20140416
  2. FLUOROURACIL. [Suspect]
     Active Substance: FLUOROURACIL
     Indication: PRODUCT USED FOR UNKNOWN INDICATION
     Dosage: DAILY DOSE: 2500 MG MILLGRAM(S) EVERY WEEKS
     Route: 042
     Dates: start: 20131119, end: 20131120
  3. FLUOROURACIL. [Suspect]
     Active Substance: FLUOROURACIL
     Indication: PRODUCT USED FOR UNKNOWN INDICATION
     Dosage: DAILY DOSE: 1850 MG MILLGRAM(S) EVERY WEEKS
     Route: 042
     Dates: start: 20140120, end: 20140121
  4. FLUOROURACIL. [Suspect]
     Active Substance: FLUOROURACIL
     Indication: PRODUCT USED FOR UNKNOWN INDICATION
     Dosage: DAILY DOSE: 2500 MG MILLGRAM(S) EVERY WEEKS
     Route: 042
     Dates: start: 20131112, end: 20131113
  5. FLUOROURACIL. [Suspect]
     Active Substance: FLUOROURACIL
     Indication: PRODUCT USED FOR UNKNOWN INDICATION
     Dosage: DAILY DOSE: 2500 MG MILLGRAM(S) EVERY WEEKS
     Route: 042
     Dates: start: 20131126, end: 20131127
  6. FLUOROURACIL. [Suspect]
     Active Substance: FLUOROURACIL
     Indication: PRODUCT USED FOR UNKNOWN INDICATION
     Dosage: DAILY DOSE: 2500 MG MILLGRAM(S) EVERY WEEKS
     Route: 042
     Dates: start: 20131001, end: 20131002
  7. FOLINIC ACID [Suspect]
     Active Substance: LEUCOVORIN
     Indication: PRODUCT USED FOR UNKNOWN INDICATION
     Dosage: DAILY DOSE: 800 MG MILLGRAM(S) EVERY WEEKS
     Route: 042
     Dates: start: 20140409, end: 20140409
  8. AVASTIN [Suspect]
     Active Substance: BEVACIZUMAB
     Indication: PRODUCT USED FOR UNKNOWN INDICATION
     Dosage: DAILY DOSE: 340 MG MILLGRAM(S) EVERY 2 WEEKS
     Route: 042
     Dates: start: 20140416, end: 20140416
  9. FLUOROURACIL. [Suspect]
     Active Substance: FLUOROURACIL
     Indication: PRODUCT USED FOR UNKNOWN INDICATION
     Dosage: DAILY DOSE: 1850 MG MILLGRAM(S) EVERY WEEKS
     Route: 042
     Dates: start: 20140224, end: 20140225
  10. FOLINIC ACID [Suspect]
     Active Substance: LEUCOVORIN
     Indication: PRODUCT USED FOR UNKNOWN INDICATION
     Dosage: DAILY DOSE: 745 MG MILLGRAM(S) EVERY WEEKS
     Route: 042
     Dates: start: 20131210, end: 20131210
  11. FOLINIC ACID [Suspect]
     Active Substance: LEUCOVORIN
     Indication: PRODUCT USED FOR UNKNOWN INDICATION
     Dosage: DAILY DOSE: 800 MG MILLGRAM(S) EVERY WEEKS
     Route: 042
     Dates: start: 20140319, end: 20140319
  12. FLUOROURACIL. [Suspect]
     Active Substance: FLUOROURACIL
     Indication: PRODUCT USED FOR UNKNOWN INDICATION
     Dosage: DAILY DOSE: 1850 MG MILLGRAM(S) EVERY WEEKS
     Route: 042
     Dates: start: 20140127, end: 20140128
  13. FLUOROURACIL. [Suspect]
     Active Substance: FLUOROURACIL
     Indication: PRODUCT USED FOR UNKNOWN INDICATION
     Dosage: DAILY DOSE: 1850 MG MILLGRAM(S) EVERY WEEKS
     Route: 042
     Dates: start: 20140210, end: 20140211
  14. AVASTIN [Suspect]
     Active Substance: BEVACIZUMAB
     Indication: COLORECTAL CANCER METASTATIC
     Dosage: DAILY DOSE: 340 MG MILLGRAM(S) EVERY 2 WEEKS
     Route: 042
     Dates: start: 20140416, end: 20140416
  15. BISO LICH [Concomitant]
     Active Substance: BISOPROLOL
     Indication: HYPERTENSION
     Route: 048
     Dates: end: 1999
  16. FOLINIC ACID [Suspect]
     Active Substance: LEUCOVORIN
     Indication: PRODUCT USED FOR UNKNOWN INDICATION
     Dosage: DAILY DOSE: 745 MG MILLGRAM(S) EVERY WEEKS
     Route: 042
     Dates: start: 20130203, end: 20130203
  17. FOLINIC ACID [Suspect]
     Active Substance: LEUCOVORIN
     Indication: PRODUCT USED FOR UNKNOWN INDICATION
     Dosage: DAILY DOSE: 800 MG MILLGRAM(S) EVERY WEEKS
     Route: 042
     Dates: start: 20131103, end: 20131103
  18. FOLINIC ACID [Suspect]
     Active Substance: LEUCOVORIN
     Indication: PRODUCT USED FOR UNKNOWN INDICATION
     Dosage: DAILY DOSE: 800 MG MILLGRAM(S) EVERY WEEKS
     Route: 042
     Dates: start: 20131007, end: 20131007
  19. FOLINIC ACID [Suspect]
     Active Substance: LEUCOVORIN
     Indication: PRODUCT USED FOR UNKNOWN INDICATION
     Dosage: DAILY DOSE: 800 MG MILLGRAM(S) EVERY WEEKS
     Route: 042
     Dates: start: 20131119, end: 20131119
  20. FOLINIC ACID [Suspect]
     Active Substance: LEUCOVORIN
     Indication: PRODUCT USED FOR UNKNOWN INDICATION
     Dosage: DAILY DOSE: 800 MG MILLGRAM(S) EVERY WEEKS
     Route: 042
     Dates: start: 20131001, end: 20131001
  21. SIMVASTATIN. [Concomitant]
     Active Substance: SIMVASTATIN
     Indication: HYPERLIPIDAEMIA
     Route: 048
     Dates: start: 1999
  22. FLUOROURACIL. [Suspect]
     Active Substance: FLUOROURACIL
     Indication: PRODUCT USED FOR UNKNOWN INDICATION
     Dosage: DAILY DOSE: 2500 MG MILLGRAM(S) EVERY WEEKS
     Route: 042
     Dates: start: 20130924, end: 20130925
  23. FLUOROURACIL. [Suspect]
     Active Substance: FLUOROURACIL
     Indication: PRODUCT USED FOR UNKNOWN INDICATION
     Dosage: DAILY DOSE: 1850 MG MILLGRAM(S) EVERY WEEKS
     Route: 042
     Dates: start: 20140402, end: 20140403
  24. AVASTIN [Suspect]
     Active Substance: BEVACIZUMAB
     Indication: PRODUCT USED FOR UNKNOWN INDICATION
     Dosage: DAILY DOSE: 415 MG MILLGRAM(S) EVERY 2 WEEKS
     Route: 042
     Dates: start: 20131203, end: 20131203
  25. FLUOROURACIL. [Suspect]
     Active Substance: FLUOROURACIL
     Indication: PRODUCT USED FOR UNKNOWN INDICATION
     Dosage: DAILY DOSE: 2500 MG MILLGRAM(S) EVERY WEEKS
     Route: 042
     Dates: start: 20131110, end: 20131111
  26. FOLINIC ACID [Suspect]
     Active Substance: LEUCOVORIN
     Indication: PRODUCT USED FOR UNKNOWN INDICATION
     Dosage: DAILY DOSE: 800 MG MILLGRAM(S) EVERY WEEKS
     Route: 042
     Dates: start: 20131105, end: 20131105
  27. FOLINIC ACID [Suspect]
     Active Substance: LEUCOVORIN
     Indication: PRODUCT USED FOR UNKNOWN INDICATION
     Dosage: DAILY DOSE: 800 MG MILLGRAM(S) EVERY WEEKS
     Route: 042
     Dates: start: 20140402, end: 20140402
  28. FOLINIC ACID [Suspect]
     Active Substance: LEUCOVORIN
     Indication: PRODUCT USED FOR UNKNOWN INDICATION
     Dosage: DAILY DOSE: 745 MG MILLGRAM(S) EVERY WEEKS
     Route: 042
     Dates: start: 20130217, end: 20130217
  29. BERLINSULIN H [Concomitant]
     Indication: DIABETES MELLITUS
     Dosage: STRENGTH 30/70,30/70
     Route: 058
     Dates: start: 1999
  30. GLIMEPIRIDE. [Concomitant]
     Active Substance: GLIMEPIRIDE
     Indication: DIABETES MELLITUS
     Route: 048
     Dates: start: 1999
  31. FLUOROURACIL. [Suspect]
     Active Substance: FLUOROURACIL
     Indication: PRODUCT USED FOR UNKNOWN INDICATION
     Dosage: DAILY DOSE: 1850 MG MILLGRAM(S) EVERY WEEKS
     Route: 042
     Dates: start: 20140203, end: 20140204
  32. FOLINIC ACID [Suspect]
     Active Substance: LEUCOVORIN
     Indication: PRODUCT USED FOR UNKNOWN INDICATION
     Dosage: DAILY DOSE: 800 MG MILLGRAM(S) EVERY WEEKS
     Route: 042
     Dates: start: 20131014, end: 20131014
  33. FOLINIC ACID [Suspect]
     Active Substance: LEUCOVORIN
     Indication: PRODUCT USED FOR UNKNOWN INDICATION
     Dosage: DAILY DOSE: 745 MG MILLGRAM(S) EVERY WEEKS
     Route: 042
     Dates: start: 20130127, end: 20130127
  34. FLUOROURACIL. [Suspect]
     Active Substance: FLUOROURACIL
     Indication: PRODUCT USED FOR UNKNOWN INDICATION
     Dosage: DAILY DOSE: 2500 MG MILLGRAM(S) EVERY WEEKS
     Route: 042
     Dates: start: 20131105, end: 20131113
  35. FLUOROURACIL. [Suspect]
     Active Substance: FLUOROURACIL
     Indication: PRODUCT USED FOR UNKNOWN INDICATION
     Dosage: DAILY DOSE: 1850 MG MILLGRAM(S) EVERY WEEKS
     Route: 042
     Dates: start: 20140326, end: 20140327
  36. FLUOROURACIL. [Suspect]
     Active Substance: FLUOROURACIL
     Indication: PRODUCT USED FOR UNKNOWN INDICATION
     Dosage: DAILY DOSE: 2500 MG MILLGRAM(S) EVERY WEEKS
     Route: 042
     Dates: start: 20131007, end: 20131008
  37. FLUOROURACIL. [Suspect]
     Active Substance: FLUOROURACIL
     Indication: PRODUCT USED FOR UNKNOWN INDICATION
     Dosage: DAILY DOSE: 2500 MG MILLGRAM(S) EVERY WEEKS
     Route: 042
     Dates: start: 20131203, end: 20131204
  38. FLUOROURACIL. [Suspect]
     Active Substance: FLUOROURACIL
     Indication: COLORECTAL CANCER METASTATIC
     Dosage: DAILY DOSE: 1850 MG MILLGRAM(S) EVERY WEEKS
     Route: 042
     Dates: start: 20140416, end: 20140417
  39. HYDROCHLOROTHIAZIDE. [Concomitant]
     Active Substance: HYDROCHLOROTHIAZIDE
     Indication: HYPERTENSION
     Route: 048
     Dates: start: 1999
  40. SEVIKAR [Concomitant]
     Active Substance: AMLODIPINE BESYLATE\OLMESARTAN MEDOXOMIL
     Indication: HYPERTENSION
     Route: 048
     Dates: start: 1999
  41. FOLINIC ACID [Suspect]
     Active Substance: LEUCOVORIN
     Indication: PRODUCT USED FOR UNKNOWN INDICATION
     Dosage: DAILY DOSE: 800 MG MILLGRAM(S) EVERY WEEKS
     Route: 042
     Dates: start: 20130924, end: 20130924
  42. FOLINIC ACID [Suspect]
     Active Substance: LEUCOVORIN
     Indication: PRODUCT USED FOR UNKNOWN INDICATION
     Dosage: DAILY DOSE: 745 MG MILLGRAM(S) EVERY WEEKS
     Route: 042
     Dates: start: 20140210, end: 20140210
  43. FOLINIC ACID [Suspect]
     Active Substance: LEUCOVORIN
     Indication: PRODUCT USED FOR UNKNOWN INDICATION
     Dosage: DAILY DOSE: 800 MG MILLGRAM(S) EVERY WEEKS
     Route: 042
     Dates: start: 20140416, end: 20140416
  44. FOLINIC ACID [Suspect]
     Active Substance: LEUCOVORIN
     Indication: PRODUCT USED FOR UNKNOWN INDICATION
     Dosage: DAILY DOSE: 800 MG MILLGRAM(S) EVERY WEEKS
     Route: 042
     Dates: start: 20131126, end: 20131126
  45. FLUOROURACIL. [Suspect]
     Active Substance: FLUOROURACIL
     Indication: PRODUCT USED FOR UNKNOWN INDICATION
     Dosage: DAILY DOSE: 1850 MG MILLGRAM(S) EVERY WEEKS
     Route: 042
     Dates: start: 20140409, end: 20140410
  46. FLUOROURACIL. [Suspect]
     Active Substance: FLUOROURACIL
     Indication: PRODUCT USED FOR UNKNOWN INDICATION
     Dosage: DAILY DOSE: 1850 MG MILLGRAM(S) EVERY WEEKS
     Route: 042
     Dates: start: 20140217, end: 20140218
  47. FOLINIC ACID [Suspect]
     Active Substance: LEUCOVORIN
     Indication: COLORECTAL CANCER
     Dosage: DAILY DOSE: 800 MG MILLGRAM(S) EVERY WEEKS
     Route: 042
     Dates: start: 20140416, end: 20140416
  48. ALOXI [Concomitant]
     Active Substance: PALONOSETRON HYDROCHLORIDE
     Indication: VOMITING
     Dosage: DAILY DOSE: 500 MCG MICROGRAM(S) EVERY DAYS
     Route: 065
     Dates: start: 20140417, end: 20140417
  49. FLUOROURACIL. [Suspect]
     Active Substance: FLUOROURACIL
     Indication: PRODUCT USED FOR UNKNOWN INDICATION
     Dosage: DAILY DOSE: 1850 MG MILLGRAM(S) EVERY WEEKS
     Route: 042
     Dates: start: 20140416, end: 20140417
  50. FOLINIC ACID [Suspect]
     Active Substance: LEUCOVORIN
     Indication: COLORECTAL CANCER
     Dosage: DAILY DOSE: 800 MG MILLGRAM(S) EVERY WEEKS
     Route: 042
     Dates: start: 20130917, end: 20130917
  51. FOLINIC ACID [Suspect]
     Active Substance: LEUCOVORIN
     Indication: PRODUCT USED FOR UNKNOWN INDICATION
     Dosage: DAILY DOSE: 745 MG MILLGRAM(S) EVERY WEEKS
     Route: 042
     Dates: start: 20140224, end: 20140224
  52. FOLINIC ACID [Suspect]
     Active Substance: LEUCOVORIN
     Indication: PRODUCT USED FOR UNKNOWN INDICATION
     Dosage: DAILY DOSE: 745 MG MILLGRAM(S) EVERY WEEKS
     Route: 042
     Dates: start: 20140120, end: 20140120
  53. FLUOROURACIL. [Suspect]
     Active Substance: FLUOROURACIL
     Indication: PRODUCT USED FOR UNKNOWN INDICATION
     Dosage: DAILY DOSE: 1850 MG MILLGRAM(S) EVERY WEEKS
     Route: 042
     Dates: start: 20140319, end: 20140320
  54. FOLINIC ACID [Suspect]
     Active Substance: LEUCOVORIN
     Indication: PRODUCT USED FOR UNKNOWN INDICATION
     Dosage: DAILY DOSE: 800 MG MILLGRAM(S) EVERY WEEKS
     Route: 042
     Dates: start: 20131112, end: 20131112

REACTIONS (5)
  - Diarrhoea [Recovered/Resolved]
  - Abdominal pain upper [Fatal]
  - Vomiting [Recovered/Resolved]
  - Anaemia [Recovered/Resolved]
  - Malignant neoplasm progression [Fatal]

NARRATIVE: CASE EVENT DATE: 20131014
